FAERS Safety Report 6244954-X (Version None)
Quarter: 2009Q2

REPORT INFORMATION
  Report Type: 
  Country: None (occurrence: None)
  Receive Date: 20090625
  Receipt Date: 20090618
  Transmission Date: 20091009
  Serious: Yes (Other)
  Sender: FDA-Public Use
  Company Number: PHHY2009IE24497

PATIENT
  Sex: Male

DRUGS (5)
  1. VOLTAREN [Suspect]
     Dosage: 2.5 MG, UNK
     Route: 054
  2. PARALINK [Concomitant]
  3. FENTANYL [Concomitant]
  4. ZOFRAN [Concomitant]
  5. ANAESTHETICS [Concomitant]

REACTIONS (3)
  - LIP SWELLING [None]
  - PRURITUS [None]
  - RASH [None]
